FAERS Safety Report 9351886 (Version 1)
Quarter: 2013Q2

REPORT INFORMATION
  Report Type: Spontaneous
  Country: DE (occurrence: None)
  Receive Date: 20130612
  Receipt Date: 20130612
  Transmission Date: 20140414
  Serious: Yes (Congenital Anomaly, Other)
  Sender: FDA-Public Use
  Company Number: GER/GER/13/0029944

PATIENT
  Age: 0 Year
  Sex: Male
  Weight: 3.77 kg

DRUGS (3)
  1. LAMOTRIGINE (LAMOTRIGINE) [Suspect]
     Indication: PRODUCT USED FOR UNKNOWN INDICATION
     Dosage: 1200 MG, SINCE GESTATIONAL WEEK 6.0, TRANSPLACENTAL
     Route: 064
     Dates: start: 20070403, end: 20080102
  2. FRISIUM [Suspect]
     Indication: PRODUCT USED FOR UNKNOWN INDICATION
     Dosage: 10 MG, TILL WK 23, THEN DECREASING DOSE, TRANSPLACENTAL
     Route: 064
  3. FOLSAURE (FOLIC ACID) [Concomitant]

REACTIONS (4)
  - Maternal drugs affecting foetus [None]
  - Ventricular septal defect [None]
  - Haemangioma congenital [None]
  - Caesarean section [None]
